FAERS Safety Report 15680740 (Version 3)
Quarter: 2019Q2

REPORT INFORMATION
  Report Type: Report from Study
  Country: CA (occurrence: CA)
  Receive Date: 20181203
  Receipt Date: 20190530
  Transmission Date: 20190711
  Serious: Yes (Other)
  Sender: FDA-Public Use
  Company Number: PHHY2018CA124252

PATIENT
  Age: 29 Year
  Sex: Female

DRUGS (1)
  1. COSENTYX [Suspect]
     Active Substance: SECUKINUMAB
     Indication: ANKYLOSING SPONDYLITIS
     Dosage: 150 MG, QMO
     Route: 058
     Dates: start: 20180814

REACTIONS (9)
  - Skin plaque [Unknown]
  - General physical condition decreased [Unknown]
  - Acne [Unknown]
  - Malaise [Unknown]
  - Ankylosing spondylitis [Unknown]
  - Hyperthyroidism [Unknown]
  - Gait disturbance [Unknown]
  - Pain [Unknown]
  - Hunger [Unknown]

NARRATIVE: CASE EVENT DATE: 201905
